FAERS Safety Report 11165282 (Version 1)
Quarter: 2015Q2

REPORT INFORMATION
  Report Type: Spontaneous
  Country: CN (occurrence: CN)
  Receive Date: 20150604
  Receipt Date: 20150604
  Transmission Date: 20150821
  Serious: Yes (Hospitalization)
  Sender: FDA-Public Use
  Company Number: PHHY2015CN060573

PATIENT
  Sex: Female

DRUGS (2)
  1. TEGRETOL [Suspect]
     Active Substance: CARBAMAZEPINE
     Indication: TRIGEMINAL NEURALGIA
     Dosage: 1 DF, QD
     Route: 048
  2. TEGRETOL [Suspect]
     Active Substance: CARBAMAZEPINE
     Indication: HEADACHE
     Dosage: 1 DF, QD
     Route: 048

REACTIONS (8)
  - Anaemia [Recovering/Resolving]
  - Lung infection [Recovering/Resolving]
  - Skin infection [Recovering/Resolving]
  - Hypocalcaemia [Recovering/Resolving]
  - Hepatic function abnormal [Recovering/Resolving]
  - Hypoproteinaemia [Recovering/Resolving]
  - Rash [Recovering/Resolving]
  - Erythema multiforme [Recovering/Resolving]
